FAERS Safety Report 9708572 (Version 1)
Quarter: 2013Q4

REPORT INFORMATION
  Report Type: Spontaneous
  Country: US (occurrence: US)
  Receive Date: 20131125
  Receipt Date: 20131125
  Transmission Date: 20140711
  Serious: No
  Sender: FDA-Public Use
  Company Number: US-009507513-1311USA009788

PATIENT
  Age: 35 Year
  Sex: Female

DRUGS (2)
  1. CLARITIN-D [Suspect]
     Indication: NASOPHARYNGITIS
     Dosage: 5 MG, ONCE
     Route: 048
     Dates: start: 20131112
  2. CLARITIN-D [Suspect]
     Indication: NASAL CONGESTION

REACTIONS (3)
  - Tinnitus [Unknown]
  - Nausea [Unknown]
  - Drug ineffective [Unknown]
